FAERS Safety Report 7733501-9 (Version None)
Quarter: 2011Q3

REPORT INFORMATION
  Report Type: 
  Country: None (occurrence: None)
  Receive Date: 20110907
  Receipt Date: 20110907
  Transmission Date: 20111222
  Serious: No
  Sender: FDA-Public Use
  Company Number: None

PATIENT
  Age: 66 Year
  Sex: Female
  Weight: 78.017 kg

DRUGS (1)
  1. DEMEROL [Suspect]
     Indication: PROCEDURAL PAIN
     Dosage: 25MG
     Route: 042
     Dates: start: 20110606, end: 20110606

REACTIONS (2)
  - RASH ERYTHEMATOUS [None]
  - URTICARIA [None]
